FAERS Safety Report 18586394 (Version 20)
Quarter: 2024Q3

REPORT INFORMATION
  Report Type: Spontaneous
  Country: CA (occurrence: CA)
  Receive Date: 20201207
  Receipt Date: 20240716
  Transmission Date: 20241017
  Serious: Yes (Hospitalization, Other)
  Sender: SANOFI AVENTIS
  Company Number: CA-SA-2020SA349303

PATIENT
  Age: 75 Year
  Sex: Male

DRUGS (44)
  1. FLOMAX [Suspect]
     Active Substance: TAMSULOSIN HYDROCHLORIDE
     Indication: Benign prostatic hyperplasia
     Dosage: 0.4 MG, QD
     Route: 048
     Dates: start: 20110811
  2. FLOMAX [Suspect]
     Active Substance: TAMSULOSIN HYDROCHLORIDE
     Indication: Prostatomegaly
  3. FLOMAX [Suspect]
     Active Substance: TAMSULOSIN HYDROCHLORIDE
     Indication: Benign prostatic hyperplasia
  4. EMPAGLIFLOZIN [Suspect]
     Active Substance: EMPAGLIFLOZIN
     Indication: Product used for unknown indication
     Dosage: UNK
  5. EMPAGLIFLOZIN [Suspect]
     Active Substance: EMPAGLIFLOZIN
     Dosage: UNK
  6. METOPROLOL FUMARATE [Suspect]
     Active Substance: METOPROLOL FUMARATE
     Indication: Cardiac failure
     Dosage: 200 MG, ONCE DAILY (1 IN 1 DAYS)
     Route: 048
     Dates: start: 20180103
  7. METOPROLOL FUMARATE [Suspect]
     Active Substance: METOPROLOL FUMARATE
     Dosage: 4 MG
     Route: 048
     Dates: start: 20180103
  8. METOPROLOL FUMARATE [Suspect]
     Active Substance: METOPROLOL FUMARATE
     Dosage: 4 MG
     Route: 048
     Dates: start: 20180103
  9. NITROGLYCERIN [Suspect]
     Active Substance: NITROGLYCERIN
     Indication: Angina pectoris
     Dosage: 1 MG, QD
     Route: 061
  10. NITROGLYCERIN [Suspect]
     Active Substance: NITROGLYCERIN
     Dosage: 1 MG, QD
     Route: 061
  11. JARDIANCE [Suspect]
     Active Substance: EMPAGLIFLOZIN
     Indication: Cardiac failure
     Dosage: 20 MG, QD
     Route: 048
     Dates: start: 20180725, end: 20201106
  12. JARDIANCE [Suspect]
     Active Substance: EMPAGLIFLOZIN
     Dosage: UNK
  13. JARDIANCE [Suspect]
     Active Substance: EMPAGLIFLOZIN
     Dosage: UNK
     Route: 048
     Dates: start: 20180725
  14. PRAMIPEXOLE [Suspect]
     Active Substance: PRAMIPEXOLE\PRAMIPEXOLE DIHYDROCHLORIDE
     Indication: Restless legs syndrome
     Dosage: UNK
     Route: 048
     Dates: start: 20190716
  15. PRAMIPEXOLE [Suspect]
     Active Substance: PRAMIPEXOLE\PRAMIPEXOLE DIHYDROCHLORIDE
     Indication: Prostatomegaly
     Route: 048
  16. PRAMIPEXOLE [Suspect]
     Active Substance: PRAMIPEXOLE\PRAMIPEXOLE DIHYDROCHLORIDE
     Route: 048
  17. PRAMIPEXOLE [Suspect]
     Active Substance: PRAMIPEXOLE\PRAMIPEXOLE DIHYDROCHLORIDE
     Indication: Prostatomegaly
     Route: 048
  18. AMLODIPINE MESYLATE [Suspect]
     Active Substance: AMLODIPINE MESYLATE
     Indication: Cardiac failure
     Dosage: UNK
  19. AMLODIPINE MESYLATE [Suspect]
     Active Substance: AMLODIPINE MESYLATE
  20. MIRAPEX [Suspect]
     Active Substance: PRAMIPEXOLE DIHYDROCHLORIDE
     Indication: Restless legs syndrome
     Dosage: UNK
     Route: 048
     Dates: start: 20190716
  21. MIRAPEX [Suspect]
     Active Substance: PRAMIPEXOLE DIHYDROCHLORIDE
     Route: 048
  22. TRAZODONE [Concomitant]
     Active Substance: TRAZODONE HYDROCHLORIDE
     Indication: Antidepressant therapy
     Dosage: 50 MG, QD
     Route: 048
     Dates: start: 20180214
  23. TRAZODONE [Concomitant]
     Active Substance: TRAZODONE HYDROCHLORIDE
     Dosage: UNK UNK, UNKNOWN FREQ.
     Route: 065
  24. CLOPIDOGREL [Concomitant]
     Active Substance: CLOPIDOGREL BISULFATE
     Indication: Cardiac failure
     Dosage: 75 MG, QD
     Route: 048
     Dates: start: 20180404
  25. CLOPIDOGREL [Concomitant]
     Active Substance: CLOPIDOGREL BISULFATE
     Dosage: UNK UNK, UNKNOWN FREQ.
     Route: 065
  26. EZETIMIBE [Concomitant]
     Active Substance: EZETIMIBE
     Indication: Dyslipidaemia
     Dosage: 10 MG, QD
     Route: 048
     Dates: start: 20180418
  27. EZETIMIBE [Concomitant]
     Active Substance: EZETIMIBE
     Dosage: UNK UNK, UNKNOWN FREQ.
     Route: 065
  28. RIVAROXABAN [Concomitant]
     Active Substance: RIVAROXABAN
     Indication: Coronary artery disease
     Dosage: 15 MG, QD
     Route: 048
     Dates: start: 20180214
  29. RIVAROXABAN [Concomitant]
     Active Substance: RIVAROXABAN
     Dosage: UNK UNK, UNKNOWN FREQ.
     Route: 065
  30. CRESTOR [Concomitant]
     Active Substance: ROSUVASTATIN CALCIUM
     Indication: Dyslipidaemia
     Dosage: UNK UNK, UNKNOWN FREQ.
     Route: 048
     Dates: start: 20120524
  31. CRESTOR [Concomitant]
     Active Substance: ROSUVASTATIN CALCIUM
     Route: 048
     Dates: start: 20120524
  32. BICALUTAMIDE [Concomitant]
     Active Substance: BICALUTAMIDE
     Indication: Neoplasm malignant
     Dosage: 50 MG, QD
     Route: 048
  33. BICALUTAMIDE [Concomitant]
     Active Substance: BICALUTAMIDE
     Dosage: 50 MG, QD
     Route: 048
  34. BICALUTAMIDE [Concomitant]
     Active Substance: BICALUTAMIDE
     Dosage: UNK UNK, UNKNOWN FREQ.
     Route: 065
  35. BICALUTAMIDE [Concomitant]
     Active Substance: BICALUTAMIDE
     Route: 048
  36. ROSUVASTATIN CALCIUM [Concomitant]
     Active Substance: ROSUVASTATIN CALCIUM
     Indication: Dyslipidaemia
     Dosage: 20 MG, QD
     Route: 048
     Dates: start: 20120524
  37. ROSUVASTATIN CALCIUM [Concomitant]
     Active Substance: ROSUVASTATIN CALCIUM
     Route: 048
  38. ROSUVASTATIN CALCIUM [Concomitant]
     Active Substance: ROSUVASTATIN CALCIUM
  39. ROSUVASTATIN CALCIUM [Concomitant]
     Active Substance: ROSUVASTATIN CALCIUM
     Dosage: UNK UNK, UNKNOWN FREQ.
     Route: 065
  40. ROSUVASTATIN CALCIUM [Concomitant]
     Active Substance: ROSUVASTATIN CALCIUM
     Route: 048
  41. ROSUVASTATIN CALCIUM [Concomitant]
     Active Substance: ROSUVASTATIN CALCIUM
     Dosage: UNK UNK, UNKNOWN FREQ.
     Route: 065
  42. ROSUVASTATIN CALCIUM [Concomitant]
     Active Substance: ROSUVASTATIN CALCIUM
     Dosage: UNK UNK, UNKNOWN FREQ.
     Route: 048
  43. ROSUVASTATIN CALCIUM [Concomitant]
     Active Substance: ROSUVASTATIN CALCIUM
     Dosage: UNK UNK, UNKNOWN FREQ.
     Route: 048
  44. ROSUVASTATIN CALCIUM [Concomitant]
     Active Substance: ROSUVASTATIN CALCIUM
     Dosage: UNK UNK, UNKNOWN FREQ.
     Route: 048

REACTIONS (6)
  - Adrenal insufficiency [Not Recovered/Not Resolved]
  - Troponin increased [Not Recovered/Not Resolved]
  - Hyperthyroidism [Not Recovered/Not Resolved]
  - Hypotension [Not Recovered/Not Resolved]
  - Hypotension [Recovered/Resolved with Sequelae]
  - Off label use [Unknown]

NARRATIVE: CASE EVENT DATE: 20201101
